FAERS Safety Report 24793284 (Version 1)
Quarter: 2024Q4

REPORT INFORMATION
  Report Type: Report from Study
  Country: JP (occurrence: JP)
  Receive Date: 20241231
  Receipt Date: 20241231
  Transmission Date: 20250114
  Serious: Yes (Hospitalization, Other)
  Sender: ACCORD
  Company Number: JP-Accord-462121

PATIENT
  Age: 36 Year
  Sex: Male

DRUGS (2)
  1. CLOZAPINE [Suspect]
     Active Substance: CLOZAPINE
     Indication: Schizophrenia
  2. VALPROATE [Concomitant]
     Active Substance: VALPROIC ACID

REACTIONS (3)
  - Inflammation [Unknown]
  - Eosinophilia [Unknown]
  - Pneumonia [Unknown]
